FAERS Safety Report 5084627-2 (Version None)
Quarter: 2006Q3

REPORT INFORMATION
  Report Type: 
  Country: None (occurrence: None)
  Receive Date: 20060821
  Receipt Date: 20060811
  Transmission Date: 20061208
  Serious: Yes (Hospitalization)
  Sender: FDA-Public Use
  Company Number: JP-ROCHE-459317

PATIENT
  Age: 50 Year
  Sex: Male

DRUGS (2)
  1. PANALDINE [Suspect]
     Indication: PROPHYLAXIS
     Dosage: INDICATION REPORTED AS RESTENOSIS PROPHYLAXIS AFTER STENT PLACEMENT
     Route: 048
     Dates: start: 20060715, end: 20060728
  2. 8-HOUR BAYER [Concomitant]
     Route: 048

REACTIONS (1)
  - DRUG ERUPTION [None]
